FAERS Safety Report 15713709 (Version 1)
Quarter: 2018Q4

REPORT INFORMATION
  Report Type: Spontaneous
  Country: US (occurrence: US)
  Receive Date: 20181212
  Receipt Date: 20181212
  Transmission Date: 20190205
  Serious: No
  Sender: FDA-Public Use
  Company Number: None

PATIENT
  Age: 83 Year
  Sex: Male
  Weight: 99.9 kg

DRUGS (7)
  1. PROMACTA [Suspect]
     Active Substance: ELTROMBOPAG OLAMINE
     Indication: THROMBOCYTOPENIA
     Route: 048
  2. LEVOTHYROXINE. [Concomitant]
     Active Substance: LEVOTHYROXINE
  3. WARFARIN [Concomitant]
     Active Substance: WARFARIN
  4. METOPROLOL TARTRATE. [Concomitant]
     Active Substance: METOPROLOL TARTRATE
  5. LATANOPROST. [Concomitant]
     Active Substance: LATANOPROST
  6. AMIODARONE [Concomitant]
     Active Substance: AMIODARONE
  7. SIMVASTATIN. [Concomitant]
     Active Substance: SIMVASTATIN

REACTIONS (5)
  - Fatigue [None]
  - Asthenia [None]
  - Toxicity to various agents [None]
  - Myalgia [None]
  - Pain [None]

NARRATIVE: CASE EVENT DATE: 20181212
